FAERS Safety Report 11961885 (Version 2)
Quarter: 2016Q1

REPORT INFORMATION
  Report Type: Spontaneous
  Country: US (occurrence: US)
  Receive Date: 20160126
  Receipt Date: 20160309
  Transmission Date: 20160526
  Serious: No
  Sender: FDA-Public Use
  Company Number: US-BAYER-2016-015045

PATIENT
  Age: 45 Year
  Sex: Female
  Weight: 55.33 kg

DRUGS (1)
  1. ZEGERID OTC CAPSULES [Suspect]
     Active Substance: OMEPRAZOLE\SODIUM BICARBONATE
     Indication: DYSPEPSIA
     Dosage: 1 DF, EVRY 24HRS
     Route: 048
     Dates: start: 20160120, end: 20160121

REACTIONS (2)
  - Diarrhoea [Recovered/Resolved]
  - Nausea [None]

NARRATIVE: CASE EVENT DATE: 20160120
